FAERS Safety Report 4581939-3 (Version None)
Quarter: 2005Q1

REPORT INFORMATION
  Report Type: 
  Country: None (occurrence: None)
  Receive Date: 20050214
  Receipt Date: 20030609
  Transmission Date: 20050727
  Serious: No
  Sender: FDA-Public Use
  Company Number: US-GLAXOSMITHKLINE-A0513982A

PATIENT
  Age: 43 Year
  Sex: Female

DRUGS (3)
  1. LAMICTAL [Suspect]
     Dosage: 200MG PER DAY
     Route: 048
     Dates: start: 20031201
  2. EFFEXOR [Concomitant]
  3. GABATRIL [Concomitant]
     Dosage: 4MG UNKNOWN
     Route: 048

REACTIONS (1)
  - AMENORRHOEA [None]
